FAERS Safety Report 19453923 (Version 1)
Quarter: 2021Q2

REPORT INFORMATION
  Report Type: Report from Study
  Country: US (occurrence: US)
  Receive Date: 20210623
  Receipt Date: 20210623
  Transmission Date: 20210717
  Serious: No
  Sender: FDA-Public Use
  Company Number: NVSC2021US131713

PATIENT
  Age: 61 Year
  Sex: Female

DRUGS (1)
  1. ENTRESTO [Suspect]
     Active Substance: SACUBITRIL\VALSARTAN
     Indication: CARDIAC FAILURE
     Dosage: 50 MG, BID (49.51 MG)
     Route: 048
     Dates: start: 202010

REACTIONS (2)
  - Oropharyngeal discomfort [Unknown]
  - Throat clearing [Unknown]

NARRATIVE: CASE EVENT DATE: 20210608
